FAERS Safety Report 11930333 (Version 1)
Quarter: 2016Q1

REPORT INFORMATION
  Report Type: Spontaneous
  Country: US (occurrence: None)
  Receive Date: 20160120
  Receipt Date: 20160120
  Transmission Date: 20160526
  Serious: No
  Sender: FDA-Public Use
  Company Number: None

PATIENT
  Age: 48 Year
  Sex: Female

DRUGS (10)
  1. BYETTA [Concomitant]
     Active Substance: EXENATIDE
  2. METHADONE [Concomitant]
     Active Substance: METHADONE HYDROCHLORIDE
  3. OMEPRAZOLE. [Concomitant]
     Active Substance: OMEPRAZOLE
  4. HYDROMORPHON [Concomitant]
     Active Substance: HYDROMORPHONE
  5. PHENERGAN [Concomitant]
     Active Substance: PROMETHAZINE HYDROCHLORIDE
  6. GABAPENTIN. [Concomitant]
     Active Substance: GABAPENTIN
  7. INDOMETHACIN. [Concomitant]
     Active Substance: INDOMETHACIN
  8. NYSTATIN. [Concomitant]
     Active Substance: NYSTATIN
  9. PREDNISONE. [Concomitant]
     Active Substance: PREDNISONE
  10. HARVONI [Suspect]
     Active Substance: LEDIPASVIR\SOFOSBUVIR
     Indication: HEPATITIS C
     Dosage: 90-400 MG QD, PO
     Route: 048
     Dates: start: 20151223

REACTIONS (2)
  - Dehydration [None]
  - Abdominal discomfort [None]

NARRATIVE: CASE EVENT DATE: 20160106
